FAERS Safety Report 18688128 (Version 1)
Quarter: 2020Q4

REPORT INFORMATION
  Report Type: Spontaneous
  Country: FR (occurrence: FR)
  Receive Date: 20201231
  Receipt Date: 20201231
  Transmission Date: 20210114
  Serious: Yes (Hospitalization)
  Sender: FDA-Public Use
  Company Number: FR-TEVA-2020-FR-1863745

PATIENT
  Age: 65 Year
  Sex: Male
  Weight: 84 kg

DRUGS (9)
  1. VENLAFAXINE [Suspect]
     Active Substance: VENLAFAXINE HYDROCHLORIDE
     Indication: DEPRESSION
     Dosage: 75 MG
     Route: 048
     Dates: end: 20191127
  2. ALPRAZOLAM. [Concomitant]
     Active Substance: ALPRAZOLAM
  3. VIMPAT [Concomitant]
     Active Substance: LACOSAMIDE
  4. IRBESARTAN. [Concomitant]
     Active Substance: IRBESARTAN
  5. TIAPRIDAL 138 MG/ML, SOLUTION BUVABLE [Suspect]
     Active Substance: TIAPRIDE HYDROCHLORIDE
     Indication: AGGRESSION
     Dosage: 150 MG
     Route: 048
     Dates: start: 20191016, end: 20191205
  6. GARDENAL [Concomitant]
     Active Substance: PHENOBARBITAL
  7. URBANYL [Concomitant]
     Active Substance: CLOBAZAM
  8. LAMOTRIGINE. [Concomitant]
     Active Substance: LAMOTRIGINE
  9. XATRAL LP 10 MG, COMPRIME A LIBERATION PROLONGEE [Concomitant]
     Active Substance: ALFUZOSIN

REACTIONS (3)
  - Cognitive disorder [Recovered/Resolved]
  - Hallucination [Recovered/Resolved]
  - Aggression [Recovered/Resolved]

NARRATIVE: CASE EVENT DATE: 20191125
